FAERS Safety Report 6412933-5 (Version None)
Quarter: 2009Q4

REPORT INFORMATION
  Report Type: 
  Country: None (occurrence: None)
  Receive Date: 20091023
  Receipt Date: 20091015
  Transmission Date: 20100525
  Serious: Yes (Other)
  Sender: FDA-Public Use
  Company Number: US-NICOBRDEVP-2009-08563

PATIENT

DRUGS (2)
  1. OXYTROL [Suspect]
     Indication: ENURESIS
     Dosage: ^IN MOST CASES THE DOSE WAS LESS THAN OR EQUAL TO 10 MG/DAY^
     Route: 065
  2. OXYTROL [Suspect]
     Indication: NEUROGENIC BLADDER

REACTIONS (9)
  - ABNORMAL DREAMS [None]
  - AGITATION [None]
  - ANXIETY [None]
  - ATTENTION DEFICIT/HYPERACTIVITY DISORDER [None]
  - CONFUSIONAL STATE [None]
  - DRUG TOXICITY [None]
  - HALLUCINATION, TACTILE [None]
  - PERSONALITY DISORDER [None]
  - SEDATION [None]
